FAERS Safety Report 7223974 (Version 6)
Quarter: 2013Q4

REPORT INFORMATION
  Report Type: Spontaneous
  Country: US (occurrence: US)
  Receive Date: 20091221
  Receipt Date: 20131202
  Transmission Date: 20140711
  Serious: Yes (Hospitalization, Other)
  Sender: FDA-Public Use
  Company Number: US-BAYER-200942804NA

PATIENT
  Age: 29 Year
  Sex: Female
  Weight: 96.6 kg

DRUGS (3)
  1. YAZ [Suspect]
     Route: 048
     Dates: start: 200805, end: 200912
  2. YASMIN [Suspect]
  3. LORTAB [Concomitant]

REACTIONS (2)
  - Cholecystectomy [Unknown]
  - Cholecystitis acute [None]
